FAERS Safety Report 7632088-9 (Version None)
Quarter: 2011Q3

REPORT INFORMATION
  Report Type: 
  Country: None (occurrence: None)
  Receive Date: 20110701
  Receipt Date: 20101214
  Transmission Date: 20111222
  Serious: Yes (Other)
  Sender: FDA-Public Use
  Company Number: 7032211

PATIENT
  Age: 49 Year
  Sex: Female
  Weight: 63 kg

DRUGS (2)
  1. REBIF [Suspect]
     Indication: MULTIPLE SCLEROSIS
     Dosage: 44, 3 IN 1, SUBCUTANEOUS
     Route: 058
     Dates: start: 20071206
  2. UNSPECIFIED MEDICATIONS(ALL OTHER THERAPEUTIC PRODUCTS) [Concomitant]

REACTIONS (5)
  - STRESS [None]
  - INJECTION SITE PAIN [None]
  - INJECTION SITE ABSCESS [None]
  - MULTIPLE SCLEROSIS RELAPSE [None]
  - INJECTION SITE INDURATION [None]
